FAERS Safety Report 16785531 (Version 10)
Quarter: 2020Q3

REPORT INFORMATION
  Report Type: Spontaneous
  Country: US (occurrence: US)
  Receive Date: 20190909
  Receipt Date: 20200818
  Transmission Date: 20201102
  Serious: No
  Sender: FDA-Public Use
  Company Number: US-PFIZER INC-2019384527

PATIENT
  Age: 87 Year
  Sex: Female

DRUGS (3)
  1. XALKORI [Suspect]
     Active Substance: CRIZOTINIB
     Dosage: UNK
  2. XALKORI [Suspect]
     Active Substance: CRIZOTINIB
     Dosage: 250 MG, 2X/DAY
     Route: 048
     Dates: start: 20190719
  3. XALKORI [Suspect]
     Active Substance: CRIZOTINIB
     Indication: LUNG NEOPLASM MALIGNANT
     Dosage: 250 MG, 2X/DAY
     Dates: start: 2019

REACTIONS (7)
  - Nasopharyngitis [Unknown]
  - Halo vision [Unknown]
  - Malaise [Unknown]
  - Product taste abnormal [Unknown]
  - Wrong technique in product usage process [Unknown]
  - Poor quality product administered [Unknown]
  - Vision blurred [Unknown]

NARRATIVE: CASE EVENT DATE: 20190903
